FAERS Safety Report 4457924-9 (Version None)
Quarter: 2004Q3

REPORT INFORMATION
  Report Type: 
  Country: None (occurrence: None)
  Receive Date: 20040924
  Receipt Date: 20040920
  Transmission Date: 20050211
  Serious: Yes (Death, Life-Threatening)
  Sender: FDA-Public Use
  Company Number: 200413487FR

PATIENT
  Age: 92 Year
  Sex: Female
  Weight: 56 kg

DRUGS (1)
  1. LOVENOX [Suspect]
     Route: 042
     Dates: start: 20040504, end: 20040509

REACTIONS (16)
  - BACTERIAL INFECTION [None]
  - BLOOD CULTURE POSITIVE [None]
  - BLOOD FIBRINOGEN INCREASED [None]
  - CARDIAC FAILURE [None]
  - DEHYDRATION [None]
  - LEG AMPUTATION [None]
  - LEUKOCYTOSIS [None]
  - LOSS OF CONSCIOUSNESS [None]
  - MULTI-ORGAN FAILURE [None]
  - MUSCLE NECROSIS [None]
  - PNEUMONIA ASPIRATION [None]
  - POST PROCEDURAL COMPLICATION [None]
  - PYREXIA [None]
  - RESPIRATORY DISORDER [None]
  - SEPSIS [None]
  - TRAUMATIC HAEMATOMA [None]
